FAERS Safety Report 23970298 (Version 1)
Quarter: 2024Q2

REPORT INFORMATION
  Report Type: Spontaneous
  Country: FR (occurrence: FR)
  Receive Date: 20240613
  Receipt Date: 20240613
  Transmission Date: 20240716
  Serious: Yes (Death, Hospitalization, Other)
  Sender: FDA-Public Use
  Company Number: FR-JNJFOC-20240628396

PATIENT
  Age: 70 Year
  Sex: Female

DRUGS (2)
  1. YONDELIS [Suspect]
     Active Substance: TRABECTEDIN
     Indication: Myxoid liposarcoma
     Dosage: CYCLE 1
     Route: 041
     Dates: start: 20240124, end: 20240124
  2. YONDELIS [Suspect]
     Active Substance: TRABECTEDIN
     Route: 041
     Dates: start: 20240219

REACTIONS (15)
  - Thrombotic microangiopathy [Fatal]
  - Dyspnoea [Fatal]
  - Oedema peripheral [Recovering/Resolving]
  - Hepatic enzyme increased [Recovered/Resolved]
  - Vomiting [Recovered/Resolved]
  - Insomnia [Recovered/Resolved]
  - Decreased appetite [Not Recovered/Not Resolved]
  - Anaemia [Not Recovered/Not Resolved]
  - Acute kidney injury [Recovering/Resolving]
  - Pancytopenia [Recovering/Resolving]
  - Troponin increased [Recovering/Resolving]
  - Lymphopenia [Not Recovered/Not Resolved]
  - Pulmonary embolism [Not Recovered/Not Resolved]
  - Bacteraemia [Recovered/Resolved]
  - Brain natriuretic peptide increased [Recovering/Resolving]

NARRATIVE: CASE EVENT DATE: 20240207
